FAERS Safety Report 7991041-6 (Version None)
Quarter: 2011Q4

REPORT INFORMATION
  Report Type: 
  Country: None (occurrence: None)
  Receive Date: 20111219
  Receipt Date: 20111212
  Transmission Date: 20120403
  Serious: Yes (Hospitalization, Other)
  Sender: FDA-Public Use
  Company Number: RO-UCBSA-046247

PATIENT
  Age: 68 Year
  Sex: Female
  Weight: 77 kg

DRUGS (5)
  1. SIOFOR [Concomitant]
     Indication: DIABETES MELLITUS
     Dates: start: 20070801
  2. NEUPRO [Suspect]
     Route: 062
     Dates: start: 20110421, end: 20110509
  3. NEUPRO [Suspect]
     Route: 062
     Dates: start: 20110407, end: 20110420
  4. NEUPRO [Suspect]
     Indication: PARKINSON'S DISEASE
     Route: 062
     Dates: start: 20110510, end: 20111024
  5. AMARYL [Concomitant]
     Indication: DIABETES MELLITUS
     Dates: start: 20070801

REACTIONS (2)
  - SYNCOPE [None]
  - ATRIOVENTRICULAR BLOCK COMPLETE [None]
